FAERS Safety Report 19074844 (Version 2)
Quarter: 2021Q2

REPORT INFORMATION
  Report Type: Report from Study
  Country: None (occurrence: IT)
  Receive Date: 20210331
  Receipt Date: 20210417
  Transmission Date: 20210717
  Serious: Yes (Other)
  Sender: FDA-Public Use
  Company Number: IT-ABBVIE-21P-083-3837063-00

PATIENT
  Age: 38 Year
  Sex: Female
  Weight: 60 kg

DRUGS (12)
  1. PACLITAXEL. [Suspect]
     Active Substance: PACLITAXEL
     Indication: HER2 POSITIVE BREAST CANCER
     Dosage: 129.6 MILLIGRAM, 1/WEEK
     Route: 042
     Dates: start: 20190423
  2. CARBOPLATIN. [Suspect]
     Active Substance: CARBOPLATIN
     Indication: HER2 POSITIVE BREAST CANCER
     Dosage: 700 MILLIGRAM, Q3WEEKS
     Route: 042
     Dates: start: 20190423
  3. TRIMETON [Concomitant]
     Active Substance: CHLORPHENIRAMINE MALEATE
     Indication: PRODUCT USED FOR UNKNOWN INDICATION
     Dosage: UNK
     Dates: start: 20190423
  4. RANITIDINE. [Concomitant]
     Active Substance: RANITIDINE
     Indication: PRODUCT USED FOR UNKNOWN INDICATION
     Dosage: UNK
     Dates: start: 20190423
  5. PERTUZUMAB. [Suspect]
     Active Substance: PERTUZUMAB
     Indication: HER2 POSITIVE BREAST CANCER
     Dosage: 420 MILLIGRAM, Q3WEEKS
     Route: 042
     Dates: start: 20190423
  6. DESAMETASONE [Concomitant]
     Active Substance: DEXAMETHASONE
     Indication: PRODUCT USED FOR UNKNOWN INDICATION
     Dosage: UNK
     Dates: start: 20190423
  7. LEUPRORELIN [Suspect]
     Active Substance: LEUPROLIDE ACETATE
     Indication: HER2 POSITIVE BREAST CANCER
     Dosage: 3.75 MILLIGRAM, Q4WEEKS
     Route: 058
     Dates: start: 20190401
  8. TRASTUZUMAB. [Suspect]
     Active Substance: TRASTUZUMAB
     Indication: HER2 POSITIVE BREAST CANCER
     Dosage: 360 MILLIGRAM, Q3WEEKS
     Route: 041
     Dates: start: 20190423
  9. LIMICAN [Concomitant]
     Active Substance: ALIZAPRIDE HYDROCHLORIDE
     Indication: PRODUCT USED FOR UNKNOWN INDICATION
     Dosage: UNK
     Dates: start: 20190423
  10. AKYNZEO [Concomitant]
     Active Substance: NETUPITANT\PALONOSETRON HYDROCHLORIDE
     Indication: PRODUCT USED FOR UNKNOWN INDICATION
     Dosage: UNK
     Dates: start: 20190423
  11. DISSENTEN [Concomitant]
     Active Substance: LOPERAMIDE HYDROCHLORIDE
     Indication: PRODUCT USED FOR UNKNOWN INDICATION
     Dosage: UNK
     Dates: start: 20190423
  12. LEUPRORELIN [Suspect]
     Active Substance: LEUPROLIDE ACETATE
     Indication: HER2 POSITIVE BREAST CANCER
     Dosage: 11.25 MILLIGRAM, Q4WEEKS
     Route: 058
     Dates: start: 20191126

REACTIONS (2)
  - Neutropenia [Recovered/Resolved]
  - Alopecia [Recovered/Resolved]

NARRATIVE: CASE EVENT DATE: 20190430
